FAERS Safety Report 17794201 (Version 2)
Quarter: 2020Q3

REPORT INFORMATION
  Report Type: Report from Study
  Country: US (occurrence: US)
  Receive Date: 20200515
  Receipt Date: 20200720
  Transmission Date: 20201102
  Serious: Yes (Hospitalization, Other)
  Sender: FDA-Public Use
  Company Number: US-BIOGEN-2020BI00873145

PATIENT
  Sex: Female

DRUGS (2)
  1. LEVAQUIN [Suspect]
     Active Substance: LEVOFLOXACIN
     Indication: PRODUCT USED FOR UNKNOWN INDICATION
     Route: 065
  2. TYSABRI [Suspect]
     Active Substance: NATALIZUMAB
     Indication: MULTIPLE SCLEROSIS
     Route: 065
     Dates: start: 20160428

REACTIONS (5)
  - Gastric infection [Recovered/Resolved]
  - Clostridium difficile infection [Recovered/Resolved]
  - Product dose omission issue [Unknown]
  - Adverse drug reaction [Unknown]
  - Weight decreased [Unknown]
